FAERS Safety Report 20350079 (Version 1)
Quarter: 2022Q1

REPORT INFORMATION
  Report Type: Spontaneous
  Country: US (occurrence: None)
  Receive Date: 20220119
  Receipt Date: 20220119
  Transmission Date: 20220423
  Serious: No
  Sender: FDA-Public Use
  Company Number: None

PATIENT
  Age: 70 Year
  Sex: Female

DRUGS (1)
  1. FEMARA [Suspect]
     Active Substance: LETROZOLE
     Indication: Breast cancer female
     Dosage: 2.5MG ONCE DAILY ORAL?
     Route: 048

REACTIONS (2)
  - Cholelithiasis [None]
  - Endoscopic retrograde cholangiopancreatography abnormal [None]

NARRATIVE: CASE EVENT DATE: 20220101
